FAERS Safety Report 20035174 (Version 1)
Quarter: 2021Q4

REPORT INFORMATION
  Report Type: Spontaneous
  Country: BR (occurrence: BR)
  Receive Date: 20211104
  Receipt Date: 20211104
  Transmission Date: 20220303
  Serious: Yes (Hospitalization)
  Sender: FDA-Public Use
  Company Number: BR-NOVOPROD-862634

PATIENT
  Age: 62 Year
  Sex: Female
  Weight: 104 kg

DRUGS (6)
  1. INSULIN HUMAN [Suspect]
     Active Substance: INSULIN HUMAN
     Indication: Product used for unknown indication
     Dosage: 54 IU, QD(24U+ 10U+20U)
     Route: 065
  2. LOSARTAN [Concomitant]
     Active Substance: LOSARTAN
     Indication: Product used for unknown indication
     Dosage: 50 MG, BID
     Route: 065
  3. SIMVASTATIN [Concomitant]
     Active Substance: SIMVASTATIN
     Indication: Product used for unknown indication
     Dosage: 20 MG, BID
     Route: 065
  4. ASPIRIN [Concomitant]
     Active Substance: ASPIRIN
     Indication: Product used for unknown indication
     Dosage: 100 MG
     Route: 065
  5. METFORMIN [Concomitant]
     Active Substance: METFORMIN HYDROCHLORIDE
     Indication: Product used for unknown indication
     Dosage: 850 MG
     Route: 065
  6. ROSUVASTATIN [Concomitant]
     Active Substance: ROSUVASTATIN
     Dosage: 20 MG, QD

REACTIONS (6)
  - Myocardial infarction [Unknown]
  - Hypoglycaemia [Unknown]
  - Hyperglycaemia [Unknown]
  - Abdominal discomfort [Unknown]
  - Weight increased [Unknown]
  - Glycosuria [Unknown]
